FAERS Safety Report 8765539 (Version 1)
Quarter: 2012Q4

REPORT INFORMATION
  Report Type: 
  Country: US (occurrence: US)
  Receive Date: 20120903
  Receipt Date: 20120903
  Transmission Date: 20130627
  Serious: No
  Sender: FDA-Public Use
  Company Number: US-BAYER-2012-085313

PATIENT
  Age: 68 Year
  Sex: Male
  Weight: 90.7 kg

DRUGS (9)
  1. ALEVE CAPLET/TABLET,MIDOL EXTENDED RELIEF CAPLET [Suspect]
     Indication: PRODUCT USED FOR UNKNOWN INDICATION
     Dosage: 2 DF, TID
     Route: 048
     Dates: start: 20120810, end: 20120811
  2. SIMVASTATIN [Concomitant]
  3. INSULIN70/30 [Concomitant]
  4. PLAVIX [Concomitant]
  5. METFORMIN [Concomitant]
  6. LISINOPRIL [Concomitant]
  7. VITAMIN D [Concomitant]
  8. FISH OIL [Concomitant]
  9. OXYCODONE [Concomitant]

REACTIONS (1)
  - Drug ineffective [Unknown]
